FAERS Safety Report 5911955-8 (Version None)
Quarter: 2008Q4

REPORT INFORMATION
  Report Type: 
  Country: None (occurrence: None)
  Receive Date: 20081008
  Receipt Date: 20081001
  Transmission Date: 20090506
  Serious: Yes (Other)
  Sender: FDA-Public Use
  Company Number: PHHY2008GB17640

PATIENT
  Sex: Male

DRUGS (8)
  1. TASIGNA [Suspect]
     Indication: ACUTE LYMPHOCYTIC LEUKAEMIA
     Dosage: 400 MG, BID
     Dates: start: 20080717
  2. TASIGNA [Suspect]
     Indication: BLAST CRISIS IN MYELOGENOUS LEUKAEMIA
  3. ELSPAR [Suspect]
     Indication: CHEMOTHERAPY
  4. ALFUZOSIN HCL [Concomitant]
  5. DUTASTERIDE [Concomitant]
  6. ENSURE [Concomitant]
  7. CALOGEN [Concomitant]
  8. STEROIDS NOS [Concomitant]

REACTIONS (5)
  - CONFUSIONAL STATE [None]
  - LIVER FUNCTION TEST ABNORMAL [None]
  - LOWER RESPIRATORY TRACT INFECTION [None]
  - PROTHROMBIN TIME PROLONGED [None]
  - PYREXIA [None]
